FAERS Safety Report 9554165 (Version 1)
Quarter: 2013Q3

REPORT INFORMATION
  Report Type: Spontaneous
  Country: US (occurrence: US)
  Receive Date: 20130925
  Receipt Date: 20130925
  Transmission Date: 20140515
  Serious: No
  Sender: FDA-Public Use
  Company Number: US-BAYER-2013-116176

PATIENT
  Age: 80 Year
  Sex: Male
  Weight: 88.44 kg

DRUGS (3)
  1. ALEVE CAPLET [Suspect]
     Indication: ARTHRITIS
     Dosage: 2 DF, PRN
     Route: 048
     Dates: start: 20130919
  2. LISINOPRIL [Concomitant]
  3. MULTIVITAMIN [Concomitant]

REACTIONS (2)
  - Drug ineffective [None]
  - Extra dose administered [None]
